FAERS Safety Report 15096440 (Version 1)
Quarter: 2018Q3

REPORT INFORMATION
  Report Type: Spontaneous
  Country: US (occurrence: US)
  Receive Date: 20180702
  Receipt Date: 20180702
  Transmission Date: 20181010
  Serious: Yes (Other)
  Sender: FDA-Public Use
  Company Number: US-TEVA-795203USA

PATIENT
  Sex: Female

DRUGS (1)
  1. TRAMADOL. [Suspect]
     Active Substance: TRAMADOL
     Dosage: 50 MILLIGRAM DAILY;
     Route: 065
     Dates: start: 20170521, end: 20170609

REACTIONS (3)
  - Electrocardiogram abnormal [Unknown]
  - Pain in jaw [Unknown]
  - Tachycardia [Unknown]

NARRATIVE: CASE EVENT DATE: 20170609
